FAERS Safety Report 18407051 (Version 1)
Quarter: 2020Q4

REPORT INFORMATION
  Report Type: Spontaneous
  Country: US (occurrence: US)
  Receive Date: 20201020
  Receipt Date: 20201020
  Transmission Date: 20210114
  Serious: No
  Sender: FDA-Public Use
  Company Number: US-PFIZER INC-2020402871

PATIENT
  Sex: Male

DRUGS (1)
  1. SUTENT [Suspect]
     Active Substance: SUNITINIB MALATE
     Dosage: UNK [ONE PILL ONE WEEK, TWO PILLS FOR NEXT WEEK AND THIS WEEK SO I AM ON THREE PILLS]

REACTIONS (6)
  - Paraesthesia oral [Unknown]
  - Dehydration [Unknown]
  - Swollen tongue [Unknown]
  - Muscle tightness [Unknown]
  - Dry mouth [Unknown]
  - Dysphonia [Unknown]
